FAERS Safety Report 6284164-3 (Version None)
Quarter: 2009Q3

REPORT INFORMATION
  Report Type: 
  Country: None (occurrence: None)
  Receive Date: 20090727
  Receipt Date: 20090716
  Transmission Date: 20100115
  Serious: Yes (Other)
  Sender: FDA-Public Use
  Company Number: CA-JNJFOC-20090705577

PATIENT
  Sex: Male
  Weight: 109 kg

DRUGS (1)
  1. REMICADE [Suspect]
     Indication: CROHN'S DISEASE
     Dosage: 26 INFUSIONS
     Route: 042

REACTIONS (2)
  - ANKLE OPERATION [None]
  - POST PROCEDURAL INFECTION [None]
